FAERS Safety Report 9885979 (Version 2)
Quarter: 2014Q1

REPORT INFORMATION
  Report Type: Spontaneous
  Country: JP (occurrence: JP)
  Receive Date: 20140210
  Receipt Date: 20140225
  Transmission Date: 20141002
  Serious: Yes (Other)
  Sender: FDA-Public Use
  Company Number: JP-GLAXOSMITHKLINE-B0964069A

PATIENT
  Age: 79 Year
  Sex: Male

DRUGS (5)
  1. VALTREX [Suspect]
     Indication: HERPES VIRUS INFECTION
     Dosage: 500MG PER DAY
     Route: 048
     Dates: start: 20140118, end: 20140120
  2. VALTREX [Suspect]
     Indication: HERPES VIRUS INFECTION
     Dosage: 250MG PER DAY
     Route: 048
     Dates: start: 20140121, end: 20140121
  3. PREDONINE [Suspect]
     Indication: VIITH NERVE PARALYSIS
     Dosage: 60MG PER DAY
     Route: 042
     Dates: start: 20140117, end: 20140124
  4. ADETPHOS [Concomitant]
     Indication: VIITH NERVE PARALYSIS
     Dosage: 40MG PER DAY
     Route: 042
     Dates: start: 20140117, end: 20140124
  5. METHYCOBAL [Concomitant]
     Indication: VIITH NERVE PARALYSIS
     Dosage: 500MCG PER DAY
     Route: 042
     Dates: start: 20140117, end: 20140124

REACTIONS (7)
  - Delirium [Recovered/Resolved]
  - Restlessness [Recovered/Resolved]
  - Hallucination [Recovered/Resolved]
  - Hallucination, auditory [Recovered/Resolved]
  - Poriomania [Recovered/Resolved]
  - Insomnia [Unknown]
  - Delusion [Unknown]
